FAERS Safety Report 25831325 (Version 1)
Quarter: 2025Q3

REPORT INFORMATION
  Report Type: Spontaneous
  Country: US (occurrence: US)
  Receive Date: 20250922
  Receipt Date: 20250922
  Transmission Date: 20251021
  Serious: Yes (Other)
  Sender: BAYER HEALTHCARE LLC
  Company Number: US-BAYER-2025A124671

PATIENT
  Age: 12 Year
  Sex: Female

DRUGS (2)
  1. ASPIRIN [Suspect]
     Active Substance: ASPIRIN
     Indication: Antiphospholipid syndrome
  2. ASPIRIN [Suspect]
     Active Substance: ASPIRIN
     Indication: Thrombotic microangiopathy

REACTIONS (5)
  - Subcapsular renal haematoma [None]
  - Haemothorax [None]
  - Product administered to patient of inappropriate age [None]
  - Product use in unapproved indication [None]
  - Product prescribing issue [None]
